FAERS Safety Report 6874555-1 (Version None)
Quarter: 2010Q3

REPORT INFORMATION
  Report Type: 
  Country: None (occurrence: None)
  Receive Date: 20100722
  Receipt Date: 20100701
  Transmission Date: 20110219
  Serious: Yes (Other)
  Sender: FDA-Public Use
  Company Number: 2010AP001356

PATIENT

DRUGS (3)
  1. CITALOPRAM HYDROBROMIDE [Suspect]
     Dosage: TRPL
     Route: 064
  2. FOLIC ACID [Concomitant]
  3. MECLOZINE HYDROCHLORIDE (MECLOZINE HYDROCHLORIDE) [Concomitant]

REACTIONS (2)
  - CHOANAL ATRESIA [None]
  - MATERNAL DRUGS AFFECTING FOETUS [None]
